FAERS Safety Report 20744337 (Version 3)
Quarter: 2022Q3

REPORT INFORMATION
  Report Type: Spontaneous
  Country: PT (occurrence: PT)
  Receive Date: 20220425
  Receipt Date: 20220729
  Transmission Date: 20221026
  Serious: Yes (Disabling)
  Sender: FDA-Public Use
  Company Number: PT-009507513-2204PRT007605

PATIENT
  Age: 58 Year
  Sex: Female

DRUGS (2)
  1. PEMBROLIZUMAB [Suspect]
     Active Substance: PEMBROLIZUMAB
     Indication: Malignant melanoma stage III
     Dosage: 200 MG EVERY 3 WEEKS (STOPPED BEFORE THE 8TH PERFUSION)
     Route: 042
  2. PEMBROLIZUMAB [Suspect]
     Active Substance: PEMBROLIZUMAB
     Dosage: 200 MG EVERY 3 WEEKS (TREATMENT WITH PEMBROLIZUMAB WAS RESUMED)
     Route: 042

REACTIONS (1)
  - Sacroiliitis [Recovered/Resolved]
